FAERS Safety Report 6922004-7 (Version None)
Quarter: 2010Q3

REPORT INFORMATION
  Report Type: 
  Country: None (occurrence: None)
  Receive Date: 20100812
  Receipt Date: 20100812
  Transmission Date: 20110219
  Serious: Yes (Death, Other)
  Sender: FDA-Public Use
  Company Number: PHHY2010TW24010

PATIENT
  Sex: Female

DRUGS (1)
  1. EXJADE [Suspect]
     Dosage: 725 MG, UNK
     Route: 048
     Dates: start: 20100316, end: 20100406

REACTIONS (2)
  - DEATH [None]
  - DIARRHOEA [None]
